FAERS Safety Report 5756314-6 (Version None)
Quarter: 2008Q2

REPORT INFORMATION
  Report Type: 
  Country: None (occurrence: None)
  Receive Date: 20080528
  Receipt Date: 20080528
  Transmission Date: 20081010
  Serious: Yes (Death)
  Sender: FDA-Public Use
  Company Number: None

PATIENT
  Age: 18 Year
  Sex: Male
  Weight: 73 kg

DRUGS (2)
  1. AZATHIOPRINE [Suspect]
     Indication: CROHN'S DISEASE
     Dosage: 50MG TWICE DAILY PO
     Route: 048
     Dates: start: 20000824, end: 20001001
  2. MERCAPTOPURINE [Suspect]
     Indication: CROHN'S DISEASE
     Dosage: 25MG ALTERNATING W/50MG DAILY PO
     Route: 048
     Dates: start: 20000824, end: 20001001

REACTIONS (14)
  - ABDOMINAL DISCOMFORT [None]
  - ANAEMIA [None]
  - DYSPNOEA EXERTIONAL [None]
  - FATIGUE [None]
  - FEBRILE NEUTROPENIA [None]
  - HEPATOSPLENIC T-CELL LYMPHOMA [None]
  - NAUSEA [None]
  - NIGHT SWEATS [None]
  - PALLOR [None]
  - PYREXIA [None]
  - SPLEEN PALPABLE [None]
  - SPLENOMEGALY [None]
  - STEM CELL TRANSPLANT [None]
  - THROMBOCYTOPENIA [None]
